FAERS Safety Report 9712956 (Version 1)
Quarter: 2013Q4

REPORT INFORMATION
  Report Type: Spontaneous
  Country: US (occurrence: US)
  Receive Date: 20131126
  Receipt Date: 20131126
  Transmission Date: 20140711
  Serious: No
  Sender: FDA-Public Use
  Company Number: US-BRISTOL-MYERS SQUIBB COMPANY-18942490

PATIENT
  Age: 80 Year
  Sex: Male

DRUGS (3)
  1. BYDUREON 2MG SUSPENSION [Suspect]
     Indication: TYPE 2 DIABETES MELLITUS
     Route: 058
     Dates: start: 20130524
  2. METFORMIN [Concomitant]
  3. NOVOLOG [Concomitant]

REACTIONS (1)
  - Decreased appetite [Unknown]
